FAERS Safety Report 6528601-5 (Version None)
Quarter: 2010Q1

REPORT INFORMATION
  Report Type: 
  Country: None (occurrence: None)
  Receive Date: 20100106
  Receipt Date: 20091207
  Transmission Date: 20100710
  Serious: Yes (Hospitalization)
  Sender: FDA-Public Use
  Company Number: AR-ELI_LILLY_AND_COMPANY-AR200912002262

PATIENT
  Age: 44 Year
  Sex: Male

DRUGS (1)
  1. BYETTA [Suspect]
     Dosage: 5 UG, UNKNOWN
     Route: 058

REACTIONS (4)
  - BLOOD GLUCOSE INCREASED [None]
  - CHILLS [None]
  - DISCOMFORT [None]
  - HOSPITALISATION [None]
